FAERS Safety Report 10174485 (Version 1)
Quarter: 2014Q2

REPORT INFORMATION
  Report Type: Spontaneous
  Country: US (occurrence: US)
  Receive Date: 20140515
  Receipt Date: 20140515
  Transmission Date: 20141212
  Serious: Yes (Death, Other)
  Sender: FDA-Public Use
  Company Number: CHPA2014US006530

PATIENT
  Age: 22 Year
  Sex: Male

DRUGS (2)
  1. KERI MOISTURIZING SHOWER BATH OIL [Suspect]
     Indication: ECZEMA
     Dosage: UNK
     Route: 061
     Dates: start: 1972
  2. KERI MOISTURIZING SHOWER BATH OIL [Suspect]
     Indication: OFF LABEL USE

REACTIONS (2)
  - Cardiac disorder [Fatal]
  - Cardiac valve disease [Unknown]
